FAERS Safety Report 6827203-0 (Version None)
Quarter: 2010Q3

REPORT INFORMATION
  Report Type: 
  Country: None (occurrence: None)
  Receive Date: 20100709
  Receipt Date: 20100628
  Transmission Date: 20110219
  Serious: Yes (Other)
  Sender: FDA-Public Use
  Company Number: PT-AMGEN-QUU421659

PATIENT
  Age: 38 Year
  Sex: Female

DRUGS (3)
  1. ENBREL [Suspect]
     Indication: RHEUMATOID ARTHRITIS
     Dosage: UNKNOWN
     Route: 058
  2. ISONIAZID [Concomitant]
     Indication: ANTIBIOTIC PROPHYLAXIS
  3. LEDERTREXATO [Concomitant]
     Indication: RHEUMATOID ARTHRITIS
     Dosage: 12 MG EVERY
     Route: 048

REACTIONS (2)
  - INJECTION SITE REACTION [None]
  - VASCULITIS [None]
